FAERS Safety Report 4584366-8 (Version None)
Quarter: 2005Q1

REPORT INFORMATION
  Report Type: 
  Country: None (occurrence: None)
  Receive Date: 20050216
  Receipt Date: 20050210
  Transmission Date: 20050727
  Serious: Yes (Death)
  Sender: FDA-Public Use
  Company Number: US-BRISTOL-MYERS SQUIBB COMPANY-12863809

PATIENT
  Age: 50 Year
  Sex: Male

DRUGS (1)
  1. BCNU [Suspect]
     Indication: HODGKIN'S DISEASE

REACTIONS (2)
  - ENCEPHALOPATHY [None]
  - MYELOPATHY [None]
